FAERS Safety Report 12677484 (Version 3)
Quarter: 2016Q3

REPORT INFORMATION
  Report Type: Report from Study
  Country: US (occurrence: US)
  Receive Date: 20160823
  Receipt Date: 20160927
  Transmission Date: 20161109
  Serious: Yes (Other)
  Sender: FDA-Public Use
  Company Number: US-JNJFOC-20160814219

PATIENT
  Sex: Male

DRUGS (13)
  1. ATORVASTATIN [Concomitant]
     Active Substance: ATORVASTATIN
  2. BENADRYL [Concomitant]
     Active Substance: DIPHENHYDRAMINE HYDROCHLORIDE
  3. NAMENDA [Concomitant]
     Active Substance: MEMANTINE HYDROCHLORIDE
  4. PLAVIX [Concomitant]
     Active Substance: CLOPIDOGREL BISULFATE
  5. FAMOTIDINE. [Concomitant]
     Active Substance: FAMOTIDINE
  6. TOCOPHEROL [Concomitant]
     Active Substance: TOCOPHEROL
  7. MECLIZINE [Concomitant]
     Active Substance: MECLIZINE HYDROCHLORIDE
  8. DONEPEZIL. [Concomitant]
     Active Substance: DONEPEZIL
  9. ISOSORBIDE MONONITRATE. [Concomitant]
     Active Substance: ISOSORBIDE MONONITRATE
  10. METOPROLOL. [Concomitant]
     Active Substance: METOPROLOL
  11. LISINOPRIL. [Concomitant]
     Active Substance: LISINOPRIL
  12. NASONEX [Concomitant]
     Active Substance: MOMETASONE FUROATE
  13. IMBRUVICA [Suspect]
     Active Substance: IBRUTINIB
     Indication: CHRONIC LYMPHOCYTIC LEUKAEMIA
     Route: 048
     Dates: start: 20150113, end: 201605

REACTIONS (3)
  - Colitis [Unknown]
  - Weight decreased [Unknown]
  - Diarrhoea [Unknown]
